FAERS Safety Report 5224528-X (Version None)
Quarter: 2007Q1

REPORT INFORMATION
  Report Type: 
  Country: None (occurrence: None)
  Receive Date: 20070130
  Receipt Date: 20070118
  Transmission Date: 20070707
  Serious: Yes (Other)
  Sender: FDA-Public Use
  Company Number: US-PFIZER INC-2007005385

PATIENT
  Sex: Female
  Weight: 116.1 kg

DRUGS (34)
  1. CELEBREX [Suspect]
     Indication: INFLAMMATION
     Dates: start: 20020101, end: 20020101
  2. CHANTIX [Suspect]
     Indication: SMOKING CESSATION THERAPY
     Route: 048
     Dates: start: 20070115, end: 20070117
  3. BACTRIM DS [Suspect]
  4. SINGULAIR [Concomitant]
  5. LISINOPRIL [Concomitant]
  6. LIPITOR [Concomitant]
  7. LEVOTHYROXINE SODIUM [Concomitant]
  8. CLARITIN [Concomitant]
  9. FLONASE [Concomitant]
  10. LORTAB [Concomitant]
  11. VALIUM [Concomitant]
  12. ZOLOFT [Concomitant]
  13. AMITRIPTYLINE HCL [Concomitant]
  14. NEURONTIN [Concomitant]
  15. BACLOFEN [Concomitant]
  16. VITAMIN B-12 [Concomitant]
  17. ROBAXIN [Concomitant]
  18. SEREVENT [Concomitant]
  19. FLOVENT [Concomitant]
  20. OXYGEN [Concomitant]
  21. ALBUTEROL [Concomitant]
  22. NEXIUM [Concomitant]
  23. ZELNORM [Concomitant]
  24. FIBERLAX [Concomitant]
  25. DOCUSATE SODIUM [Concomitant]
  26. REGLAN [Concomitant]
  27. MIRAPEX [Concomitant]
  28. MOBIC [Concomitant]
  29. DYAZIDE [Concomitant]
  30. ACETYLSALICYLIC ACID [Concomitant]
  31. VITAMIN E [Concomitant]
  32. VITAMIN B-12 [Concomitant]
  33. ALL OTHER THERAPEUTIC PRODUCTS [Concomitant]
  34. ASCORBIC ACID [Concomitant]

REACTIONS (9)
  - BRONCHITIS [None]
  - DIZZINESS [None]
  - FEELING ABNORMAL [None]
  - HEADACHE [None]
  - HYPERSENSITIVITY [None]
  - HYPOAESTHESIA [None]
  - OEDEMA PERIPHERAL [None]
  - ROTATOR CUFF REPAIR [None]
  - SINUSITIS [None]
